FAERS Safety Report 6643027-1 (Version None)
Quarter: 2010Q1

REPORT INFORMATION
  Report Type: 
  Country: None (occurrence: None)
  Receive Date: 20100319
  Receipt Date: 20100315
  Transmission Date: 20100710
  Serious: Yes (Hospitalization)
  Sender: FDA-Public Use
  Company Number: B0639928A

PATIENT
  Sex: Female

DRUGS (4)
  1. LAMICTAL CD [Suspect]
     Indication: EPILEPSY
     Route: 048
     Dates: start: 20100118, end: 20100130
  2. CLAMOXYL [Concomitant]
     Indication: INFECTION
     Dosage: 2U PER DAY
     Route: 048
     Dates: start: 20100127, end: 20100127
  3. TIAPROFENIC ACID [Concomitant]
     Indication: INFECTION
     Route: 048
     Dates: start: 20100127, end: 20100127
  4. DEPAKENE [Concomitant]
     Indication: EPILEPSY
     Dosage: 1500MG PER DAY
     Route: 048

REACTIONS (16)
  - CHEILITIS [None]
  - CHILLS [None]
  - COUGH [None]
  - CYTOLYTIC HEPATITIS [None]
  - DYSPHAGIA [None]
  - EPIDERMAL NECROSIS [None]
  - ERYTHEMA [None]
  - PALATAL OEDEMA [None]
  - PHARYNGEAL ERYTHEMA [None]
  - PRODUCTIVE COUGH [None]
  - PRURITUS [None]
  - PYREXIA [None]
  - RASH MACULO-PAPULAR [None]
  - SKIN DISCOLOURATION [None]
  - TONSILLITIS [None]
  - TOXIC SKIN ERUPTION [None]
